FAERS Safety Report 19615341 (Version 1)
Quarter: 2021Q3

REPORT INFORMATION
  Report Type: Spontaneous
  Country: FI (occurrence: FI)
  Receive Date: 20210727
  Receipt Date: 20210727
  Transmission Date: 20211014
  Serious: Yes (Hospitalization)
  Sender: FDA-Public Use
  Company Number: FI-BAYER-2021-179528

PATIENT
  Age: 35 Year
  Sex: Female

DRUGS (1)
  1. KYLEENA [Suspect]
     Active Substance: LEVONORGESTREL
     Indication: CONTRACEPTION
     Dosage: 17.5 ?G, CONT
     Route: 015
     Dates: start: 202010, end: 20210616

REACTIONS (4)
  - Ectopic pregnancy [Recovering/Resolving]
  - Ectopic pregnancy with contraceptive device [Recovering/Resolving]
  - Haemoglobin decreased [Recovering/Resolving]
  - Salpingectomy [Recovering/Resolving]

NARRATIVE: CASE EVENT DATE: 20210616
